FAERS Safety Report 16428005 (Version 2)
Quarter: 2019Q3

REPORT INFORMATION
  Report Type: Spontaneous
  Country: US (occurrence: US)
  Receive Date: 20190613
  Receipt Date: 20190715
  Transmission Date: 20191004
  Serious: No
  Sender: FDA-Public Use
  Company Number: US-SA-2019SA157852

PATIENT
  Age: 51 Year
  Sex: Female
  Weight: 118.82 kg

DRUGS (2)
  1. TYLENOL [Concomitant]
     Active Substance: ACETAMINOPHEN
  2. DUPIXENT [Suspect]
     Active Substance: DUPILUMAB
     Indication: DERMATITIS ATOPIC
     Dosage: 300 MG, QOW
     Route: 058
     Dates: start: 20190430

REACTIONS (2)
  - Swollen tongue [Recovered/Resolved]
  - Scalloped tongue [Recovered/Resolved]

NARRATIVE: CASE EVENT DATE: 201904
